FAERS Safety Report 18325855 (Version 2)
Quarter: 2020Q3

REPORT INFORMATION
  Report Type: Spontaneous
  Country: US (occurrence: US)
  Receive Date: 20200929
  Receipt Date: 20200929
  Transmission Date: 20201103
  Serious: No
  Sender: FDA-Public Use
  Company Number: US-PFIZER INC-2020372707

PATIENT
  Age: 14 Year
  Sex: Female
  Weight: 53.07 kg

DRUGS (2)
  1. HYDROCORTISONE. [Concomitant]
     Active Substance: HYDROCORTISONE
     Indication: PRURITUS
     Dosage: UNK
  2. EUCRISA [Suspect]
     Active Substance: CRISABOROLE
     Indication: ECZEMA
     Dosage: 1 DF, 2X/DAY [2% TOPICAL 1 APPLICATION OINTMENT TWICE A DAY]
     Route: 061
     Dates: start: 2020

REACTIONS (4)
  - Drug ineffective [Unknown]
  - Application site pain [Unknown]
  - Skin discolouration [Unknown]
  - Rash [Unknown]

NARRATIVE: CASE EVENT DATE: 202009
